FAERS Safety Report 8057483-8 (Version None)
Quarter: 2012Q1

REPORT INFORMATION
  Report Type: 
  Country: None (occurrence: None)
  Receive Date: 20120119
  Receipt Date: 20120110
  Transmission Date: 20120608
  Serious: Yes (Disabling)
  Sender: FDA-Public Use
  Company Number: US-MERCK-1103USA03607

PATIENT
  Age: 36 Year
  Sex: Male
  Weight: 90 kg

DRUGS (4)
  1. PROPECIA [Suspect]
     Indication: ANDROGENETIC ALOPECIA
     Route: 048
     Dates: start: 20070523, end: 20090101
  2. CITALOPRAM HYDROBROMIDE [Concomitant]
     Indication: DEPRESSION
     Route: 048
     Dates: start: 20010101, end: 20100830
  3. PROPECIA [Suspect]
     Route: 048
     Dates: end: 20100501
  4. CITALOPRAM HYDROBROMIDE [Concomitant]
     Route: 048
     Dates: start: 20100801

REACTIONS (22)
  - GASTROENTERITIS VIRAL [None]
  - UPPER RESPIRATORY TRACT INFECTION [None]
  - GENITAL LESION [None]
  - FOREIGN BODY IN EYE [None]
  - CELLULITIS [None]
  - LIBIDO DECREASED [None]
  - STRESS [None]
  - SINUSITIS [None]
  - EMOTIONAL DISTRESS [None]
  - ANAL FISSURE [None]
  - SKIN LESION [None]
  - HAEMORRHOIDS [None]
  - SUBCUTANEOUS ABSCESS [None]
  - ABDOMINAL PAIN [None]
  - FATIGUE [None]
  - ANOGENITAL WARTS [None]
  - METABOLIC DISORDER [None]
  - SEMEN VOLUME DECREASED [None]
  - OVERWEIGHT [None]
  - RECTAL HAEMORRHAGE [None]
  - OTITIS MEDIA [None]
  - MALAISE [None]
